FAERS Safety Report 6607967-1 (Version None)
Quarter: 2010Q1

REPORT INFORMATION
  Report Type: 
  Country: None (occurrence: None)
  Receive Date: 20100301
  Receipt Date: 20100223
  Transmission Date: 20100710
  Serious: Yes (Disabling, Other)
  Sender: FDA-Public Use
  Company Number: US-KINGPHARMUSA00001-K200901436

PATIENT
  Sex: Female
  Weight: 93.878 kg

DRUGS (3)
  1. LEVOXYL [Suspect]
     Indication: HYPOTHYROIDISM
     Dosage: 50 MCG, QD
     Route: 048
     Dates: start: 20090909, end: 20091103
  2. NEXIUM [Concomitant]
     Dosage: UNK
  3. BABY ASPIRIN [Concomitant]
     Dosage: UNK

REACTIONS (15)
  - ACTIVITIES OF DAILY LIVING IMPAIRED [None]
  - ASTHENIA [None]
  - BLOOD GLUCOSE ABNORMAL [None]
  - BLOOD PRESSURE INCREASED [None]
  - CRYING [None]
  - DIVERTICULITIS [None]
  - DYSPHAGIA [None]
  - GASTRIC DISORDER [None]
  - HEART RATE INCREASED [None]
  - NERVOUSNESS [None]
  - OESOPHAGEAL HYPOMOTILITY [None]
  - THROAT IRRITATION [None]
  - TREMOR [None]
  - TYMPANIC MEMBRANE PERFORATION [None]
  - WEIGHT DECREASED [None]
